FAERS Safety Report 25276828 (Version 6)
Quarter: 2025Q4

REPORT INFORMATION
  Report Type: Report from Study
  Country: US (occurrence: US)
  Receive Date: 20250507
  Receipt Date: 20251224
  Transmission Date: 20260117
  Serious: No
  Sender: AVERITAS
  Company Number: US-GRUNENTHAL-2025-106305

PATIENT
  Age: 74 Year
  Sex: Male

DRUGS (10)
  1. QUTENZA [Suspect]
     Active Substance: CAPSAICIN
     Indication: Diabetic neuropathy
     Dosage: UNK UNK, ONCE
     Route: 061
     Dates: start: 20250421, end: 20250421
  2. QUTENZA [Suspect]
     Active Substance: CAPSAICIN
     Dosage: UNK UNK, ONCE
     Route: 061
     Dates: start: 2025, end: 2025
  3. QUTENZA [Suspect]
     Active Substance: CAPSAICIN
     Dosage: UNK UNK, ONCE
     Route: 061
     Dates: start: 202511, end: 202511
  4. GABAPENTIN [Concomitant]
     Active Substance: GABAPENTIN
     Indication: Product used for unknown indication
     Dosage: 600 MILLIGRAM, 2/DAY
     Route: 065
     Dates: start: 202504
  5. GABAPENTIN [Concomitant]
     Active Substance: GABAPENTIN
     Dosage: 600 MILLIGRAM, 3/DAY
     Route: 065
  6. METFORMIN [Concomitant]
     Active Substance: METFORMIN HYDROCHLORIDE
     Indication: Diabetes mellitus
     Dosage: UNK
     Route: 065
  7. INSULIN NOS [Concomitant]
     Active Substance: INSULIN NOS
     Indication: Diabetes mellitus
     Dosage: 2 DOSAGE FORM
     Route: 065
  8. VERAPAMIL [Concomitant]
     Active Substance: VERAPAMIL HYDROCHLORIDE
     Indication: Product used for unknown indication
     Dosage: UNK
     Route: 065
  9. ZOCOR [Concomitant]
     Active Substance: SIMVASTATIN
     Indication: Product used for unknown indication
     Dosage: UNK
     Route: 065
  10. LISINOPRIL [Concomitant]
     Active Substance: LISINOPRIL
     Indication: Product used for unknown indication
     Dosage: UNK
     Route: 065

REACTIONS (5)
  - Neuralgia [Unknown]
  - Hypoaesthesia [Unknown]
  - Breakthrough pain [Unknown]
  - Electric shock sensation [Unknown]
  - Pain [Recovered/Resolved]

NARRATIVE: CASE EVENT DATE: 20250422
